FAERS Safety Report 12880563 (Version 1)
Quarter: 2016Q4

REPORT INFORMATION
  Report Type: Spontaneous
  Country: US (occurrence: US)
  Receive Date: 20161025
  Receipt Date: 20161025
  Transmission Date: 20170207
  Serious: Yes (Death, Other)
  Sender: FDA-Public Use
  Company Number: US-PFIZER INC-2016494614

PATIENT
  Age: 59 Year
  Sex: Female

DRUGS (1)
  1. REVATIO [Suspect]
     Active Substance: SILDENAFIL CITRATE
     Indication: PULMONARY FIBROSIS

REACTIONS (5)
  - Pulmonary fibrosis [Fatal]
  - Disease progression [Fatal]
  - Right ventricular systolic pressure increased [Unknown]
  - Cardiomegaly [Unknown]
  - Product use issue [Unknown]
